FAERS Safety Report 6349271-5 (Version None)
Quarter: 2009Q3

REPORT INFORMATION
  Report Type: 
  Country: None (occurrence: None)
  Receive Date: 20090911
  Receipt Date: 20090908
  Transmission Date: 20100115
  Serious: Yes (Other)
  Sender: FDA-Public Use
  Company Number: A0806362A

PATIENT
  Age: 63 Year
  Sex: Female

DRUGS (11)
  1. ADVAIR HFA [Suspect]
     Indication: CHRONIC OBSTRUCTIVE PULMONARY DISEASE
     Dosage: 1PUFF TWICE PER DAY
     Route: 055
     Dates: start: 20090901
  2. ALBUTEROL [Suspect]
     Indication: CHRONIC OBSTRUCTIVE PULMONARY DISEASE
     Dosage: 1PUFF PER DAY
     Route: 055
     Dates: start: 20070101, end: 20070101
  3. DIURETICS [Concomitant]
  4. BLOOD PRESSURE MEDICATION [Concomitant]
  5. DEPAKOTE [Concomitant]
  6. CLONAPAM [Concomitant]
  7. ANTI-CHOLESTEROL MEDICATION [Concomitant]
  8. HEART MEDICATION [Concomitant]
  9. DIABETES MEDICATION [Concomitant]
  10. LASIX [Concomitant]
  11. VISTARIL [Concomitant]

REACTIONS (14)
  - CHEST PAIN [None]
  - DIZZINESS [None]
  - DRUG HYPERSENSITIVITY [None]
  - DYSPHONIA [None]
  - DYSPNOEA [None]
  - ILL-DEFINED DISORDER [None]
  - INSOMNIA [None]
  - IRRITABILITY [None]
  - MEDICATION ERROR [None]
  - MYOCARDIAL INFARCTION [None]
  - NERVOUSNESS [None]
  - PRODUCTIVE COUGH [None]
  - RESTLESSNESS [None]
  - SPUTUM DISCOLOURED [None]
